FAERS Safety Report 17868065 (Version 1)
Quarter: 2020Q2

REPORT INFORMATION
  Report Type: Spontaneous
  Country: FR (occurrence: FR)
  Receive Date: 20200606
  Receipt Date: 20200606
  Transmission Date: 20200714
  Serious: Yes (Hospitalization)
  Sender: FDA-Public Use
  Company Number: FR-SUN PHARMACEUTICAL INDUSTRIES LTD-2020RR-249567

PATIENT
  Age: 7 Year
  Sex: Female
  Weight: 21.5 kg

DRUGS (1)
  1. TRAMADOL. [Suspect]
     Active Substance: TRAMADOL
     Indication: PRODUCT ADMINISTRATION ERROR
     Dosage: 3 CP DE 100MG LP EN 1SEULE PRISE
     Route: 048
     Dates: start: 20200415, end: 20200415

REACTIONS (7)
  - Overdose [Recovered/Resolved]
  - Product administration error [Recovered/Resolved]
  - Gait disturbance [Recovered/Resolved]
  - Accidental exposure to product by child [Recovered/Resolved]
  - Wrong product administered [Recovered/Resolved]
  - Asthenia [Recovered/Resolved]
  - Abdominal pain [Recovered/Resolved]

NARRATIVE: CASE EVENT DATE: 20200415
